FAERS Safety Report 6147168-7 (Version None)
Quarter: 2009Q2

REPORT INFORMATION
  Report Type: 
  Country: None (occurrence: None)
  Receive Date: 20090406
  Receipt Date: 20090402
  Transmission Date: 20091009
  Serious: Yes (Death)
  Sender: FDA-Public Use
  Company Number: 2009SP000892

PATIENT
  Age: 52 Year
  Sex: Male
  Weight: 137.4 kg

DRUGS (15)
  1. LUNESTA [Suspect]
     Indication: INSOMNIA
     Dosage: 3 MG; HS; ORAL
     Route: 048
  2. OXYMORPHONE HYDROCHLORIDE [Suspect]
     Dosage: 30 MG; Q12H;
  3. FLUOXETINE [Suspect]
     Indication: DEPRESSION
     Dosage: 40 MG;
  4. LISINOPRIL AND HYDROCHLOROTHIAZIDE [Suspect]
     Indication: HYPERTENSION
     Dosage: ; QD; ORAL
     Route: 048
  5. METHOTREXATE [Suspect]
     Dosage: 7.5 MG; QW;
  6. ATENOLOL [Suspect]
     Indication: HYPERTENSION
     Dosage: 25 MG; QD; ORAL
     Route: 048
  7. CARISOPRODOL [Suspect]
     Dosage: 350 MG; TID; ORAL
     Route: 048
  8. FORADIL [Suspect]
     Dosage: ; BID; INHALATION
     Route: 055
  9. HYDROXYZINE [Suspect]
     Dosage: 50 MG; QID; ORAL
     Route: 048
  10. NABUMETONE [Suspect]
     Dosage: 750 MG; BID; ORAL
     Route: 048
  11. SEROQUEL [Suspect]
     Dosage: 800 MG; HS; ORAL
     Route: 048
  12. REQUIP [Suspect]
     Dosage: 0.5 MG; HS; ORAL
     Route: 048
  13. AMITRIPTLINE HYDROCHLORIDE TAB [Suspect]
     Dosage: 25 MG; HS; ORAL
     Route: 048
  14. PEGINTERFERON ALFA-2A [Suspect]
     Dosage: 180 UG; QW;
  15. ACETAMINOPHEN AND HYDROCODONE BITARTRATE [Concomitant]

REACTIONS (2)
  - PAIN [None]
  - UNRESPONSIVE TO STIMULI [None]
